FAERS Safety Report 8767846 (Version 2)
Quarter: 2012Q4

REPORT INFORMATION
  Report Type: 
  Country: JP (occurrence: JP)
  Receive Date: 20120905
  Receipt Date: 20121017
  Transmission Date: 20130627
  Serious: Yes (Other)
  Sender: FDA-Public Use
  Company Number: PHHY2012JP074834

PATIENT
  Age: 60 Year
  Sex: Female

DRUGS (4)
  1. OXALIPLATIN [Suspect]
     Indication: COLORECTAL CANCER
     Dosage: 85 mg/m2, On day 1
  2. FOLINIC ACID [Suspect]
     Indication: COLORECTAL CANCER
     Dosage: 200 mg/m2, UNK
  3. FLUOROURACIL [Suspect]
     Indication: COLORECTAL CANCER
     Dosage: 400 mg/m2, UNK
  4. FLUOROURACIL [Suspect]
     Dosage: 2400 mg/m2 in 48 hours

REACTIONS (6)
  - Hyperammonaemic encephalopathy [Recovering/Resolving]
  - Hepatic encephalopathy [Recovering/Resolving]
  - Confusional state [Recovering/Resolving]
  - Coma [Recovering/Resolving]
  - Depressed level of consciousness [Recovering/Resolving]
  - Nausea [Recovering/Resolving]
